FAERS Safety Report 25236501 (Version 3)
Quarter: 2025Q2

REPORT INFORMATION
  Report Type: Spontaneous
  Country: US (occurrence: US)
  Receive Date: 20250424
  Receipt Date: 20250528
  Transmission Date: 20250716
  Serious: No
  Sender: PFIZER
  Company Number: US-PFIZER INC-202500059367

PATIENT
  Age: 40 Year
  Sex: Female
  Weight: 91.61 kg

DRUGS (4)
  1. TIVDAK [Suspect]
     Active Substance: TISOTUMAB VEDOTIN-TFTV
     Dosage: 200 MG, EVERY 3 WEEKS
     Route: 042
  2. ALPHAGAN P [Concomitant]
     Active Substance: BRIMONIDINE TARTRATE
     Indication: Intraocular pressure increased
     Route: 047
  3. CARBOXYMETHYLCELLULOSE SODIUM [Concomitant]
     Active Substance: CARBOXYMETHYLCELLULOSE SODIUM
     Indication: Eye lubrication therapy
     Route: 047
  4. DECADRON [Concomitant]
     Active Substance: DEXAMETHASONE
     Route: 047

REACTIONS (2)
  - Weight fluctuation [Unknown]
  - Intentional product misuse [Unknown]

NARRATIVE: CASE EVENT DATE: 20250421
